FAERS Safety Report 22602711 (Version 1)
Quarter: 2023Q2

REPORT INFORMATION
  Report Type: Spontaneous
  Country: JP (occurrence: JP)
  Receive Date: 20230615
  Receipt Date: 20230615
  Transmission Date: 20230721
  Serious: Yes (Other)
  Sender: FDA-Public Use
  Company Number: JP-DSJP-DSJ-2023-121729

PATIENT
  Age: 78 Year
  Sex: Female

DRUGS (2)
  1. DENOSUMAB [Suspect]
     Active Substance: DENOSUMAB
     Indication: Osteoporosis
     Dosage: 60 MG, ONCE EVERY 6 MO, 2021/10/??, 2022/04/??
     Route: 058
     Dates: start: 202110
  2. UNSPECIFIED INGREDIENT [Suspect]
     Active Substance: UNSPECIFIED INGREDIENT
     Indication: Product used for unknown indication
     Dosage: UNK
     Route: 048

REACTIONS (3)
  - Osteonecrosis of jaw [Not Recovered/Not Resolved]
  - Sinusitis fungal [Not Recovered/Not Resolved]
  - Periodontitis [Unknown]

NARRATIVE: CASE EVENT DATE: 20220801
